FAERS Safety Report 5297344-0 (Version None)
Quarter: 2007Q2

REPORT INFORMATION
  Report Type: 
  Country: None (occurrence: None)
  Receive Date: 20070409
  Receipt Date: 20070402
  Transmission Date: 20071010
  Serious: Yes (Life-Threatening, Hospitalization, Other)
  Sender: FDA-Public Use
  Company Number: 2007SP002373

PATIENT
  Age: 8 Year
  Sex: Female
  Weight: 23 kg

DRUGS (4)
  1. TEMODAL [Suspect]
     Indication: BRAIN STEM GLIOMA
     Dosage: SEE IMAGE
     Route: 048
     Dates: start: 20061115, end: 20061227
  2. TEMODAL [Suspect]
     Indication: BRAIN STEM GLIOMA
     Dosage: SEE IMAGE
     Route: 048
  3. THALIDOMIDE [Concomitant]
  4. SEPTRIN [Concomitant]

REACTIONS (4)
  - APLASTIC ANAEMIA [None]
  - BONE MARROW FAILURE [None]
  - PANCYTOPENIA [None]
  - PYREXIA [None]
